FAERS Safety Report 6900255-5 (Version None)
Quarter: 2010Q3

REPORT INFORMATION
  Report Type: 
  Country: None (occurrence: None)
  Receive Date: 20100803
  Receipt Date: 20100726
  Transmission Date: 20110219
  Serious: Yes (Other)
  Sender: FDA-Public Use
  Company Number: GR-ROCHE-717849

PATIENT
  Sex: Female
  Weight: 62 kg

DRUGS (4)
  1. XELODA [Suspect]
     Dosage: 7 TABLETS OF 500 MG. 14 DAY CYCLE
     Route: 048
     Dates: start: 20100101
  2. XELODA [Suspect]
     Dosage: 6 TABLETS OF 500 MG. DOSE LOWERED.
     Route: 048
     Dates: end: 20100712
  3. PLAQUENIL [Concomitant]
     Indication: LUPUS VASCULITIS
  4. LANSOPRAZOLE [Concomitant]
     Indication: GASTRIC ULCER
     Dosage: DRUG NAME REPORTED AS: LAPRAZOL

REACTIONS (2)
  - PALMAR-PLANTAR ERYTHRODYSAESTHESIA SYNDROME [None]
  - PURPURA [None]
